FAERS Safety Report 21191468 (Version 1)
Quarter: 2022Q3

REPORT INFORMATION
  Report Type: Spontaneous
  Country: US (occurrence: US)
  Receive Date: 20220809
  Receipt Date: 20220809
  Transmission Date: 20221027
  Serious: No
  Sender: FDA-Public Use
  Company Number: US-JOURNEY MEDICAL CORPORATION-2021JNY00016

PATIENT
  Age: 54 Year
  Sex: Male

DRUGS (6)
  1. QBREXZA [Suspect]
     Active Substance: GLYCOPYRRONIUM TOSYLATE
     Dosage: UNK
  2. UNSPECIFIED MEDICATION FOR REFLUX [Concomitant]
  3. UNSPECIFIED INGREDIENT [Concomitant]
     Active Substance: UNSPECIFIED INGREDIENT
  4. DIAZEPAM [Concomitant]
     Active Substance: DIAZEPAM
  5. LAMOTRIGINE [Concomitant]
     Active Substance: LAMOTRIGINE
  6. FLOMAX [Concomitant]
     Active Substance: TAMSULOSIN HYDROCHLORIDE

REACTIONS (5)
  - Skin odour abnormal [Unknown]
  - Dermatitis contact [Recovering/Resolving]
  - Rash vesicular [Recovering/Resolving]
  - Genital rash [Recovering/Resolving]
  - Pruritus [Not Recovered/Not Resolved]
